FAERS Safety Report 17815295 (Version 1)
Quarter: 2020Q2

REPORT INFORMATION
  Report Type: Spontaneous
  Country: US (occurrence: US)
  Receive Date: 20200521
  Receipt Date: 20200521
  Transmission Date: 20200714
  Serious: Yes (Other)
  Sender: FDA-Public Use
  Company Number: None

PATIENT
  Sex: Female

DRUGS (2)
  1. BETAMETHASONE VALERATE TOPICAL CREAM [Suspect]
     Active Substance: BETAMETHASONE VALERATE
  2. FLUTICASONE PROPIONATE TOPICAL CREAM [Suspect]
     Active Substance: FLUTICASONE PROPIONATE

REACTIONS (1)
  - Drug ineffective [None]
